FAERS Safety Report 24548618 (Version 1)
Quarter: 2024Q4

REPORT INFORMATION
  Report Type: Spontaneous
  Country: SE (occurrence: SE)
  Receive Date: 20241025
  Receipt Date: 20241025
  Transmission Date: 20250115
  Serious: Yes (Other)
  Sender: ELI LILLY AND COMPANY
  Company Number: None

PATIENT
  Age: 27 Year
  Sex: Female

DRUGS (1)
  1. DULOXETINE HYDROCHLORIDE [Suspect]
     Active Substance: DULOXETINE HYDROCHLORIDE
     Indication: Product used for unknown indication
     Dosage: 30 MG, DAILY
     Route: 065
     Dates: start: 20241004, end: 20241004

REACTIONS (7)
  - Chest discomfort [Recovering/Resolving]
  - Sinus tachycardia [Recovering/Resolving]
  - Peripheral coldness [Recovering/Resolving]
  - Fatigue [Recovering/Resolving]
  - Dizziness [Recovering/Resolving]
  - Malaise [Recovering/Resolving]
  - Palpitations [Recovering/Resolving]

NARRATIVE: CASE EVENT DATE: 20241004
